FAERS Safety Report 7278563-0 (Version None)
Quarter: 2011Q1

REPORT INFORMATION
  Report Type: 
  Country: None (occurrence: None)
  Receive Date: 20110207
  Receipt Date: 20110201
  Transmission Date: 20110831
  Serious: Yes (Death, Other)
  Sender: FDA-Public Use
  Company Number: PHHY2011GB07593

PATIENT
  Age: 61 Year
  Sex: Female

DRUGS (3)
  1. CYCLOPHOSPHAMIDE [Suspect]
  2. MABTHERA [Suspect]
  3. FLUDARA [Suspect]

REACTIONS (2)
  - PANCYTOPENIA [None]
  - SEPSIS [None]
